FAERS Safety Report 16882001 (Version 1)
Quarter: 2019Q4

REPORT INFORMATION
  Report Type: Spontaneous
  Country: US (occurrence: US)
  Receive Date: 20191003
  Receipt Date: 20191003
  Transmission Date: 20200122
  Serious: Yes (Death, Life-Threatening, Other)
  Sender: FDA-Public Use
  Company Number: US-PURDUE-USA-2019-0148557

PATIENT
  Age: 51 Year
  Sex: Female

DRUGS (3)
  1. OXYCODONE 5 MG/5 ML (OXYCODONE) [Suspect]
     Active Substance: OXYCODONE
     Indication: PRODUCT USED FOR UNKNOWN INDICATION
     Dosage: A BOTTLE CONTAINING 420 ML (5-15 ML UP TO FOUR TIMES A DAY) WAS DISPENSED WITH 50 ML APPROPRIATEL...
     Route: 048
  2. OXYCODONE/ ACETAMINOPHEN TABLETS [Suspect]
     Active Substance: ACETAMINOPHEN\OXYCODONE HYDROCHLORIDE
     Indication: PRODUCT USED FOR UNKNOWN INDICATION
     Dosage: TWO WEEKS PRIOR TO HER DEATH, SHE WAS ALSO PRESCRIBED A 30-DAY SUPPLY (90) OF OXYCODONE-ACETAMINO...
     Route: 048
  3. GABAPENTIN. [Suspect]
     Active Substance: GABAPENTIN
     Indication: PRODUCT USED FOR UNKNOWN INDICATION
     Route: 048

REACTIONS (3)
  - Toxicity to various agents [Fatal]
  - Disorientation [Unknown]
  - Unresponsive to stimuli [Unknown]
